FAERS Safety Report 20429636 (Version 1)
Quarter: 2022Q1

REPORT INFORMATION
  Report Type: Report from Study
  Country: FR (occurrence: FR)
  Receive Date: 20220204
  Receipt Date: 20220204
  Transmission Date: 20220423
  Serious: Yes (Hospitalization)
  Sender: FDA-Public Use
  Company Number: FR-SERVIER-S19008001

PATIENT

DRUGS (24)
  1. ONCASPAR [Suspect]
     Active Substance: PEGASPARGASE
     Indication: Acute lymphocytic leukaemia
     Dosage: 1250 IU, ON D4
     Route: 042
     Dates: start: 20190510
  2. DEXAMETHASONE [Suspect]
     Active Substance: DEXAMETHASONE
     Indication: Acute lymphocytic leukaemia
     Dosage: 5.1 MG QD FROM D1 TO D7, D15 TO D21
     Route: 048
     Dates: start: 20190507, end: 20190527
  3. VINCRISTINE [Suspect]
     Active Substance: VINCRISTINE
     Indication: Acute lymphocytic leukaemia
     Dosage: 0.7 MG ON D1, D8, D15, D43
     Route: 042
     Dates: start: 20190507
  4. DAUNORUBICIN [Suspect]
     Active Substance: DAUNORUBICIN
     Indication: Acute lymphocytic leukaemia
     Dosage: 12.7 MG, ON D1, D8, D15
     Route: 042
     Dates: start: 20190507, end: 20190521
  5. THIOGUANINE [Suspect]
     Active Substance: THIOGUANINE
     Indication: Acute lymphocytic leukaemia
     Dosage: 31.2 MG QD FROM D37 TO D49 DELAYED FROM 8 DAYS
     Route: 048
     Dates: start: 20190612, end: 20190624
  6. CYTARABINE [Suspect]
     Active Substance: CYTARABINE
     Indication: Acute lymphocytic leukaemia
     Dosage: 20 MG, ON D4, D39 DELAYED FROM 8 DAYS
     Route: 037
     Dates: start: 20190510, end: 20190614
  7. CYTARABINE [Suspect]
     Active Substance: CYTARABINE
     Dosage: 39 MG QD FROM D39 TO D42, D46 TO UNREADABLE DATE
     Route: 042
     Dates: start: 20190614, end: 20190624
  8. CYCLOPHOSPHAMIDE [Suspect]
     Active Substance: CYCLOPHOSPHAMIDE
     Indication: Acute lymphocytic leukaemia
     Dosage: 520 MG, ON D37, DELAYED FROM 8 DAYS
     Route: 042
     Dates: start: 20190612
  9. DOXORUBICIN [Suspect]
     Active Substance: DOXORUBICIN
     Indication: Acute lymphocytic leukaemia
     Dosage: 12.7 MG, ON D1, D8, D15
     Route: 042
     Dates: start: 20190507, end: 20190521
  10. TN UNSPECIFIED [Concomitant]
     Indication: Acute lymphocytic leukaemia
     Dosage: 8 MG, ON D4, D39 DELAYED FROM 8 DAYS
     Route: 037
     Dates: start: 20190510, end: 20190614
  11. TN UNSPECIFIED [Concomitant]
     Indication: Acute lymphocytic leukaemia
     Dosage: 10 MG, ON D4, D39 DELAYED FROM 8 DAYS
     Route: 037
     Dates: start: 20190510, end: 20190614
  12. TN UNSPECIFIED [Concomitant]
     Indication: Pyrexia
     Dosage: UNK
     Route: 065
     Dates: start: 20181011
  13. TN UNSPECIFIED [Concomitant]
     Indication: Pain prophylaxis
  14. TN UNSPECIFIED [Concomitant]
     Indication: Prophylaxis of nausea and vomiting
     Dosage: UNK
     Route: 065
     Dates: start: 20181022
  15. TN UNSPECIFIED [Concomitant]
     Indication: Prophylaxis of nausea and vomiting
  16. ATARAX [Concomitant]
     Active Substance: HYDROXYZINE HYDROCHLORIDE
     Indication: Anxiety
     Dosage: UNK
     Route: 042
     Dates: start: 20181023
  17. NUBAIN [Concomitant]
     Active Substance: NALBUPHINE HYDROCHLORIDE
     Indication: Pain prophylaxis
     Dosage: UNK
     Route: 042
     Dates: start: 20181029
  18. ALIZAPRIDE HYDROCHLORIDE [Concomitant]
     Active Substance: ALIZAPRIDE HYDROCHLORIDE
     Indication: Prophylaxis of nausea and vomiting
     Dosage: UNK
     Route: 042
     Dates: start: 20181027
  19. ALIZAPRIDE HYDROCHLORIDE [Concomitant]
     Active Substance: ALIZAPRIDE HYDROCHLORIDE
     Indication: Prophylaxis of nausea and vomiting
  20. BACTRIM [Concomitant]
     Active Substance: SULFAMETHOXAZOLE\TRIMETHOPRIM
     Indication: Infection prophylaxis
     Dosage: 3 TAKING PER WEEK
     Route: 048
     Dates: start: 20181012
  21. POLYETHYLENE GLYCOL 4000 [Concomitant]
     Active Substance: POLYETHYLENE GLYCOL 4000
     Indication: Constipation prophylaxis
     Dosage: UNK
     Route: 048
     Dates: start: 20181023
  22. CHOLECALCIFEROL [Concomitant]
     Active Substance: CHOLECALCIFEROL
     Indication: Vitamin supplementation
     Dosage: 4U
     Route: 048
     Dates: start: 20181011
  23. FLUTICASONE PROPIONATE [Concomitant]
     Active Substance: FLUTICASONE PROPIONATE
     Indication: Asthmatic crisis
     Dosage: UNK
     Route: 055
  24. ALBUTEROL [Concomitant]
     Active Substance: ALBUTEROL
     Indication: Asthmatic crisis
     Dosage: UNK
     Route: 055

REACTIONS (1)
  - Venoocclusive disease [Recovered/Resolved]

NARRATIVE: CASE EVENT DATE: 20190621
